FAERS Safety Report 4536721-X (Version None)
Quarter: 2004Q4

REPORT INFORMATION
  Report Type: 
  Country: None (occurrence: None)
  Receive Date: 20041222
  Receipt Date: 20041222
  Transmission Date: 20050328
  Serious: Yes (Hospitalization)
  Sender: FDA-Public Use
  Company Number: None

PATIENT
  Age: 45 Year
  Sex: Female
  Weight: 71.4415 kg

DRUGS (5)
  1. METHYLENE BLUE INFUSION [Suspect]
     Dosage: 900 MG/500 ML, 425 ML GIVEN
     Dates: start: 20040903
  2. PREVACID [Concomitant]
  3. FISH OIL [Concomitant]
  4. ALLEGRA [Concomitant]
  5. MARIJUANA [Concomitant]

REACTIONS (7)
  - APHASIA [None]
  - DELAYED RECOVERY FROM ANAESTHESIA [None]
  - DRUG TOXICITY [None]
  - DYSKINESIA [None]
  - MEDICATION ERROR [None]
  - MENTAL STATUS CHANGES [None]
  - MUSCLE SPASTICITY [None]
